FAERS Safety Report 24625494 (Version 1)
Quarter: 2024Q4

REPORT INFORMATION
  Report Type: Spontaneous
  Country: US (occurrence: None)
  Receive Date: 20241115
  Receipt Date: 20241115
  Transmission Date: 20250115
  Serious: No
  Sender: Public
  Company Number: None

PATIENT
  Sex: 0

DRUGS (2)
  1. DIAZEPAM [Suspect]
     Active Substance: DIAZEPAM
  2. HYDROCODONE [Suspect]
     Active Substance: HYDROCODONE

REACTIONS (1)
  - Contraindicated product administered [None]

NARRATIVE: CASE EVENT DATE: 20241114
